FAERS Safety Report 9777098 (Version 2)
Quarter: 2014Q1

REPORT INFORMATION
  Report Type: Report from Study
  Country: FR (occurrence: FR)
  Receive Date: 20131221
  Receipt Date: 20140130
  Transmission Date: 20141002
  Serious: Yes (Hospitalization)
  Sender: FDA-Public Use
  Company Number: FR-ROCHE-1322860

PATIENT
  Sex: Female

DRUGS (17)
  1. RITUXIMAB [Suspect]
     Indication: RHEUMATOID ARTHRITIS
     Dosage: 1 G DAY 1
     Route: 041
     Dates: start: 20081208
  2. RITUXIMAB [Suspect]
     Dosage: 1 G DAY 15
     Route: 041
     Dates: start: 20081223
  3. RITUXIMAB [Suspect]
     Dosage: 1 G DAY 1
     Route: 041
     Dates: start: 20090914
  4. RITUXIMAB [Suspect]
     Dosage: 1 G DAY 15
     Route: 041
     Dates: start: 20090928
  5. RITUXIMAB [Suspect]
     Dosage: 1 G DAY 1
     Route: 041
     Dates: start: 20101116
  6. RITUXIMAB [Suspect]
     Dosage: 1 G DAY 15
     Route: 041
     Dates: start: 20101130
  7. RITUXIMAB [Suspect]
     Dosage: 1 G DAY 1
     Route: 041
     Dates: start: 20110531
  8. RITUXIMAB [Suspect]
     Dosage: 1 G DAY 15
     Route: 041
     Dates: start: 20120614
  9. RITUXIMAB [Suspect]
     Dosage: 1 G DAY 1
     Route: 041
     Dates: start: 20121001
  10. RITUXIMAB [Suspect]
     Dosage: 1 G DAY 15
     Route: 041
     Dates: start: 20121022
  11. CORTANCYL [Concomitant]
     Route: 065
  12. CORTANCYL [Concomitant]
     Route: 065
  13. CORTANCYL [Concomitant]
     Route: 065
  14. CORTANCYL [Concomitant]
     Route: 065
  15. METHOTREXATE [Concomitant]
     Route: 065
  16. METHOTREXATE [Concomitant]
     Route: 065
  17. METHOTREXATE [Concomitant]
     Route: 065

REACTIONS (6)
  - Cholelithiasis [Recovered/Resolved]
  - Mitral valve calcification [Recovered/Resolved]
  - Acute pulmonary oedema [Unknown]
  - Humerus fracture [Recovered/Resolved]
  - Urinary tract infection [Recovered/Resolved]
  - Upper respiratory tract infection [Not Recovered/Not Resolved]
